FAERS Safety Report 11722213 (Version 1)
Quarter: 2015Q4

REPORT INFORMATION
  Report Type: Spontaneous
  Country: US (occurrence: None)
  Receive Date: 20151110
  Receipt Date: 20151110
  Transmission Date: 20160304
  Serious: Yes (Life-Threatening)
  Sender: FDA-Public Use
  Company Number: None

PATIENT
  Age: 31 Year
  Sex: Male
  Weight: 50.4 kg

DRUGS (3)
  1. ARANESP [Concomitant]
     Active Substance: DARBEPOETIN ALFA
  2. VANCOMYCIN [Concomitant]
     Active Substance: VANCOMYCIN
  3. MERREM IV [Suspect]
     Active Substance: MEROPENEM
     Indication: ABSCESS SOFT TISSUE
     Route: 042
     Dates: start: 20151104, end: 20151109

REACTIONS (3)
  - Blood pressure decreased [None]
  - Electrocardiogram ST segment abnormal [None]
  - Hypoglycaemia unawareness [None]

NARRATIVE: CASE EVENT DATE: 20151109
